FAERS Safety Report 17868381 (Version 1)
Quarter: 2020Q2

REPORT INFORMATION
  Report Type: Report from Study
  Country: DE (occurrence: DE)
  Receive Date: 20200606
  Receipt Date: 20200606
  Transmission Date: 20200714
  Serious: Yes (Hospitalization, Other)
  Sender: FDA-Public Use
  Company Number: DE-AUROBINDO-AUR-APL-2020-026938

PATIENT
  Age: 66 Year
  Sex: Male

DRUGS (3)
  1. HEPARIN [Concomitant]
     Active Substance: HEPARIN SODIUM
     Indication: THROMBOSIS PROPHYLAXIS
     Dosage: 3000 INTERNATIONAL UNIT
     Route: 042
  2. PRASUGREL FILM COATED TABLETS [Suspect]
     Active Substance: PRASUGREL
     Indication: THROMBOSIS PROPHYLAXIS
     Dosage: 10 MILLIGRAM, ONCE A DAY
     Route: 048
  3. PRASUGREL FILM COATED TABLETS [Suspect]
     Active Substance: PRASUGREL
     Dosage: 20 MILLIGRAM, DAILY (10 MG, BID)
     Route: 048

REACTIONS (1)
  - Brain stem infarction [Unknown]
